FAERS Safety Report 6095018-X (Version None)
Quarter: 2009Q1

REPORT INFORMATION
  Report Type: 
  Country: None (occurrence: None)
  Receive Date: 20090227
  Receipt Date: 20080320
  Transmission Date: 20090719
  Serious: No
  Sender: FDA-Public Use
  Company Number: A0551911A

PATIENT
  Age: 44 Year
  Sex: Male

DRUGS (2)
  1. LAMICTAL [Suspect]
     Indication: BIPOLAR DISORDER
     Dosage: 25MG PER DAY
     Route: 048
     Dates: start: 20050323
  2. NO CONCURRENT MEDICATION [Concomitant]

REACTIONS (6)
  - ABNORMAL DREAMS [None]
  - ANGER [None]
  - DIARRHOEA [None]
  - DRUG INEFFECTIVE [None]
  - HYPERSOMNIA [None]
  - NIGHTMARE [None]
